FAERS Safety Report 10367844 (Version 1)
Quarter: 2014Q3

REPORT INFORMATION
  Report Type: Spontaneous
  Country: GB (occurrence: None)
  Receive Date: 20140805
  Receipt Date: 20140805
  Transmission Date: 20150326
  Serious: Yes (Hospitalization, Other)
  Sender: FDA-Public Use
  Company Number: AUR-APL-2014-08159

PATIENT
  Age: 78 Year
  Sex: Male
  Weight: 88.9 kg

DRUGS (6)
  1. RAMIPRIL. [Suspect]
     Active Substance: RAMIPRIL
     Indication: HYPERTENSION
     Dosage: 10MG, ONCE A DAY
     Dates: end: 20140616
  2. OMEPRAZOLE (OMEPRAZOLE) [Concomitant]
     Active Substance: OMEPRAZOLE
  3. DIAZEPAM (DIAZEPAM) [Concomitant]
     Active Substance: DIAZEPAM
  4. ATENOLOL (ATENOLOL) [Concomitant]
     Active Substance: ATENOLOL
  5. PARACETAMOL (PARACETAMOL) [Concomitant]
     Active Substance: ACETAMINOPHEN
  6. INDAPAMIDE (INDAPAMIDE) [Suspect]
     Active Substance: INDAPAMIDE
     Indication: HYPERTENSION
     Dosage: 2.5MG, ONCE A DAY
     Dates: start: 20140307, end: 20140616

REACTIONS (11)
  - Abdominal pain [None]
  - Body temperature decreased [None]
  - Abnormal loss of weight [None]
  - Confusional state [None]
  - Decreased appetite [None]
  - Gait disturbance [None]
  - Feeling abnormal [None]
  - Coordination abnormal [None]
  - Metamorphopsia [None]
  - Constipation [None]
  - Asthenia [None]

NARRATIVE: CASE EVENT DATE: 201405
